FAERS Safety Report 11701023 (Version 3)
Quarter: 2016Q1

REPORT INFORMATION
  Report Type: Report from Study
  Country: US (occurrence: US)
  Receive Date: 20151105
  Receipt Date: 20160218
  Transmission Date: 20160525
  Serious: Yes (Hospitalization)
  Sender: FDA-Public Use
  Company Number: US-BAYER-2015-448595

PATIENT
  Age: 49 Year
  Sex: Female

DRUGS (1)
  1. STIVARGA [Suspect]
     Active Substance: REGORAFENIB
     Indication: COLON CANCER METASTATIC
     Dosage: 160 MG, QD (40 MG, 4 TABLETS DAILY)
     Route: 048
     Dates: start: 20151005, end: 20151020

REACTIONS (15)
  - Gait disturbance [Recovered/Resolved]
  - Abdominal pain [None]
  - Rash pruritic [Not Recovered/Not Resolved]
  - Pyrexia [Not Recovered/Not Resolved]
  - Pancreatitis [None]
  - Hepatic enzyme increased [Not Recovered/Not Resolved]
  - Blister [Recovered/Resolved]
  - Pain [None]
  - Rash erythematous [Not Recovered/Not Resolved]
  - Hospitalisation [None]
  - Blood count abnormal [None]
  - Dry skin [Recovered/Resolved]
  - Blister [None]
  - Palmar-plantar erythrodysaesthesia syndrome [Recovered/Resolved]
  - Pain in extremity [Recovered/Resolved]

NARRATIVE: CASE EVENT DATE: 20151019
